FAERS Safety Report 11246515 (Version 2)
Quarter: 2015Q4

REPORT INFORMATION
  Report Type: Report from Study
  Country: US (occurrence: US)
  Receive Date: 20150708
  Receipt Date: 20151207
  Transmission Date: 20160304
  Serious: Yes (Other)
  Sender: FDA-Public Use
  Company Number: PHEH2015US010227

PATIENT
  Age: 53 Year
  Sex: Female

DRUGS (1)
  1. COSENTYX [Suspect]
     Active Substance: SECUKINUMAB
     Indication: PSORIASIS
     Dosage: 300 MG, QMO
     Route: 058
     Dates: start: 20150507

REACTIONS (8)
  - Cellulitis [Recovering/Resolving]
  - Inappropriate schedule of drug administration [Unknown]
  - Joint swelling [Unknown]
  - Pruritus [Unknown]
  - Peripheral swelling [Unknown]
  - Skin fissures [Unknown]
  - Dry skin [Unknown]
  - Psoriasis [Unknown]

NARRATIVE: CASE EVENT DATE: 20151029
